FAERS Safety Report 9529260 (Version 1)
Quarter: 2013Q3

REPORT INFORMATION
  Report Type: Spontaneous
  Country: DK (occurrence: DK)
  Receive Date: 20130917
  Receipt Date: 20130917
  Transmission Date: 20140515
  Serious: Yes (Hospitalization)
  Sender: FDA-Public Use
  Company Number: DK-AMGEN-DNKSP2013064285

PATIENT
  Age: 60 Year
  Sex: Female

DRUGS (1)
  1. PROLIA [Suspect]
     Indication: PRODUCT USED FOR UNKNOWN INDICATION
     Route: 065

REACTIONS (15)
  - Salmonellosis [Unknown]
  - Abdominal pain upper [Unknown]
  - Blister [Unknown]
  - Diarrhoea [Unknown]
  - Constipation [Unknown]
  - Flatulence [Unknown]
  - Insomnia [Unknown]
  - Weight increased [Unknown]
  - Genital pain [Unknown]
  - Genital discomfort [Unknown]
  - Pollakiuria [Unknown]
  - Facial pain [Unknown]
  - Paraesthesia [Unknown]
  - Diabetic complication [Unknown]
  - Pain in extremity [Unknown]
